FAERS Safety Report 4403730-0 (Version None)
Quarter: 2004Q3

REPORT INFORMATION
  Report Type: 
  Country: None (occurrence: None)
  Receive Date: 20040719
  Receipt Date: 20040707
  Transmission Date: 20050211
  Serious: Yes (Other)
  Sender: FDA-Public Use
  Company Number: HQWYE472715APR04

PATIENT
  Age: 78 Year
  Sex: Male

DRUGS (7)
  1. CORDARONE [Suspect]
     Indication: ATRIAL FIBRILLATION
     Dosage: SEE IMAGE
     Route: 048
     Dates: start: 20040324, end: 20040324
  2. CORDARONE [Suspect]
     Indication: TACHYARRHYTHMIA
     Dosage: SEE IMAGE
     Route: 048
     Dates: start: 20040324, end: 20040324
  3. CORDARONE [Suspect]
     Indication: ATRIAL FIBRILLATION
     Dosage: SEE IMAGE
     Route: 048
     Dates: start: 20040325
  4. CORDARONE [Suspect]
     Indication: TACHYARRHYTHMIA
     Dosage: SEE IMAGE
     Route: 048
     Dates: start: 20040325
  5. SINTROM [Concomitant]
  6. TENORMIN [Concomitant]
  7. ATORVASTATIN CALCIUM [Concomitant]

REACTIONS (2)
  - MICROALBUMINURIA [None]
  - RENAL FAILURE ACUTE [None]
